FAERS Safety Report 9229862 (Version 1)
Quarter: 2013Q2

REPORT INFORMATION
  Report Type: Spontaneous
  Country: US (occurrence: None)
  Receive Date: 20130412
  Receipt Date: 20130412
  Transmission Date: 20140414
  Serious: No
  Sender: FDA-Public Use
  Company Number: None

PATIENT
  Sex: Female
  Weight: 61.69 kg

DRUGS (4)
  1. FEXOFENADIN [Suspect]
     Indication: RHINITIS ALLERGIC
  2. FLONESCY [Concomitant]
  3. CLARITIN D [Concomitant]
  4. SINGULAIR [Concomitant]

REACTIONS (1)
  - Product formulation issue [None]
